FAERS Safety Report 5838728-9 (Version None)
Quarter: 2008Q3

REPORT INFORMATION
  Report Type: 
  Country: None (occurrence: None)
  Receive Date: 20080808
  Receipt Date: 20080808
  Transmission Date: 20090109
  Serious: Yes (Death, Congenital Anomaly)
  Sender: FDA-Public Use
  Company Number: B0532355A

PATIENT

DRUGS (3)
  1. LAMOTRIGINE [Suspect]
  2. ACETAZOLAMIDE [Suspect]
  3. CARBAMAZEPINE [Suspect]

REACTIONS (1)
  - HEART DISEASE CONGENITAL [None]
